FAERS Safety Report 18195645 (Version 3)
Quarter: 2020Q3

REPORT INFORMATION
  Report Type: Spontaneous
  Country: US (occurrence: US)
  Receive Date: 20200826
  Receipt Date: 20200927
  Transmission Date: 20201103
  Serious: No
  Sender: FDA-Public Use
  Company Number: US-JNJFOC-20200835947

PATIENT
  Age: 82 Year
  Sex: Female
  Weight: 46.31 kg

DRUGS (2)
  1. WOMENS ROGAINE UNSCENTED [Suspect]
     Active Substance: MINOXIDIL
     Route: 061
  2. WOMENS ROGAINE UNSCENTED [Suspect]
     Active Substance: MINOXIDIL
     Indication: ALOPECIA
     Dosage: HANDFULL. PUT IT ON THE SURFACE. ONCE A DAY/EVERY NIGHT?PRODUCT LAST USED ON 21?AUG?2020
     Route: 061

REACTIONS (4)
  - Product storage error [Unknown]
  - Product formulation issue [Unknown]
  - Poor quality product administered [Unknown]
  - Incorrect dose administered [Unknown]
